FAERS Safety Report 7134458-4 (Version None)
Quarter: 2010Q4

REPORT INFORMATION
  Report Type: 
  Country: None (occurrence: None)
  Receive Date: 20101117
  Receipt Date: 20101111
  Transmission Date: 20110411
  Serious: Yes (Hospitalization)
  Sender: FDA-Public Use
  Company Number: 2010SP059579

PATIENT
  Age: 68 Year
  Sex: Female
  Weight: 47 kg

DRUGS (5)
  1. INTRON A [Suspect]
     Indication: HEPATITIS C
     Dosage: 6 MIU;QD;IM, 6 MIU;TIW;IM
     Route: 030
     Dates: start: 20020315, end: 20020101
  2. INTRON A [Suspect]
     Indication: HEPATITIS C
     Dosage: 6 MIU;QD;IM, 6 MIU;TIW;IM
     Route: 030
     Dates: start: 20020101, end: 20020629
  3. REBETOL [Suspect]
     Indication: HEPATITIS C
     Dosage: 600 MG;QD;PO, 400 MG;QD;PO
     Route: 048
     Dates: start: 20020315, end: 20020617
  4. REBETOL [Suspect]
     Indication: HEPATITIS C
     Dosage: 600 MG;QD;PO, 400 MG;QD;PO
     Route: 048
     Dates: start: 20020618, end: 20020629
  5. DIOVAN [Concomitant]

REACTIONS (2)
  - INSOMNIA [None]
  - TOXIC SKIN ERUPTION [None]
